FAERS Safety Report 5337041-6 (Version None)
Quarter: 2007Q2

REPORT INFORMATION
  Report Type: 
  Country: None (occurrence: None)
  Receive Date: 20070524
  Receipt Date: 20070515
  Transmission Date: 20071010
  Serious: Yes (Hospitalization)
  Sender: FDA-Public Use
  Company Number: 156098ISR

PATIENT
  Age: 37 Year
  Sex: Female

DRUGS (10)
  1. PREDNISOLONE [Suspect]
     Indication: ASTHMA
     Dosage: 30 MG, ORAL
     Route: 048
     Dates: start: 20070408, end: 20070414
  2. SERETIDE [Concomitant]
  3. CLARITHROMYCIN [Concomitant]
  4. SALBUTAMOL [Concomitant]
  5. MUCUS DISSOLVER [Concomitant]
  6. XYLOMETAZOLINE [Concomitant]
  7. BUDESONIDE W/FORMOTEROL FUMARATE [Concomitant]
  8. AIROLIN [Concomitant]
  9. ANTIBIOTICS [Concomitant]
  10. PARACETAMOL [Concomitant]

REACTIONS (26)
  - ABDOMINAL DISCOMFORT [None]
  - CHEST PAIN [None]
  - CONDITION AGGRAVATED [None]
  - CONTUSION [None]
  - DEHYDRATION [None]
  - DEPRESSED LEVEL OF CONSCIOUSNESS [None]
  - DEPRESSED MOOD [None]
  - DIARRHOEA [None]
  - EPISTAXIS [None]
  - ERYTHEMA [None]
  - FATIGUE [None]
  - FLUID INTAKE REDUCED [None]
  - HAIR GROWTH ABNORMAL [None]
  - HEADACHE [None]
  - HYPOGEUSIA [None]
  - HYPOKALAEMIA [None]
  - MEMORY IMPAIRMENT [None]
  - MUSCULAR WEAKNESS [None]
  - ORAL INTAKE REDUCED [None]
  - PHARYNGOLARYNGEAL PAIN [None]
  - PHOTOSENSITIVITY ALLERGIC REACTION [None]
  - PNEUMONIA [None]
  - SENSE OF OPPRESSION [None]
  - SOMNOLENCE [None]
  - SWELLING FACE [None]
  - WEIGHT DECREASED [None]
